FAERS Safety Report 8881656 (Version 2)
Quarter: 2012Q4

REPORT INFORMATION
  Report Type: 
  Country: US (occurrence: US)
  Receive Date: 20121102
  Receipt Date: 20121102
  Transmission Date: 20130627
  Serious: Yes (Death, Hospitalization)
  Sender: FDA-Public Use
  Company Number: US-B.I. PHARMACEUTICALS,INC./RIDGEFIELD-2012-BP-27049BP

PATIENT
  Age: 6 None
  Sex: Female

DRUGS (1)
  1. PRADAXA [Suspect]
     Indication: ATRIAL FIBRILLATION
     Dates: start: 2012, end: 20121025

REACTIONS (3)
  - Haemorrhage [Fatal]
  - Cardiac arrest [Fatal]
  - Pancreatitis [Unknown]
